FAERS Safety Report 24253170 (Version 1)
Quarter: 2024Q3

REPORT INFORMATION
  Report Type: Spontaneous
  Country: US (occurrence: None)
  Receive Date: 20240826
  Receipt Date: 20240826
  Transmission Date: 20241017
  Serious: Yes (Other)
  Sender: Public
  Company Number: None

PATIENT
  Age: 53 Year
  Sex: Female

DRUGS (1)
  1. LAMOTRIGINE [Suspect]
     Active Substance: LAMOTRIGINE
     Indication: Anxiety
     Dosage: OTHER QUANTITY : 2 TABLET(S);?
     Route: 048
     Dates: start: 20240713, end: 20240825

REACTIONS (4)
  - Headache [None]
  - Palpitations [None]
  - Palpitations [None]
  - Hypertension [None]

NARRATIVE: CASE EVENT DATE: 20240730
